FAERS Safety Report 4534284-6 (Version None)
Quarter: 2004Q4

REPORT INFORMATION
  Report Type: 
  Country: None (occurrence: None)
  Receive Date: 20041214
  Receipt Date: 20040820
  Transmission Date: 20050328
  Serious: No
  Sender: FDA-Public Use
  Company Number: 2004230825US

PATIENT
  Age: 32 Year
  Sex: Female
  Weight: 172.3 kg

DRUGS (3)
  1. BEXTRA [Suspect]
     Indication: DYSMENORRHOEA
     Dosage: 10 MG, ORAL
     Route: 048
     Dates: start: 20040818
  2. NAPROSYN [Concomitant]
  3. PROPOXYPHENE NAPSYLATE W/ACETAMINOPHENE (DEXTROPROPOXYPHENE NAPSILATE0 [Concomitant]

REACTIONS (3)
  - DIARRHOEA [None]
  - DIZZINESS [None]
  - DYSMENORRHOEA [None]
